FAERS Safety Report 10421983 (Version 1)
Quarter: 2014Q3

REPORT INFORMATION
  Report Type: Spontaneous
  Country: US (occurrence: US)
  Receive Date: 20140901
  Receipt Date: 20140901
  Transmission Date: 20150326
  Serious: No
  Sender: FDA-Public Use
  Company Number: US-AMGEN INC.-USASP2014065055

PATIENT
  Age: 56 Year
  Sex: Female

DRUGS (1)
  1. ENBREL [Suspect]
     Active Substance: ETANERCEPT
     Indication: IMMUNODEFICIENCY
     Dosage: 50 MG, QWK
     Route: 058
     Dates: start: 20140803, end: 20140812

REACTIONS (5)
  - Adverse reaction [Unknown]
  - Pain [Unknown]
  - Contusion [Unknown]
  - Pyrexia [Unknown]
  - Swelling [Unknown]

NARRATIVE: CASE EVENT DATE: 201408
